FAERS Safety Report 8400307 (Version 2)
Quarter: 2013Q1

REPORT INFORMATION
  Report Type: Spontaneous
  Country: US (occurrence: US)
  Receive Date: 20120210
  Receipt Date: 20130219
  Transmission Date: 20140127
  Serious: No
  Sender: FDA-Public Use
  Company Number: US-BRISTOL-MYERS SQUIBB COMPANY-16312050

PATIENT
  Sex: Male

DRUGS (1)
  1. ORENCIA [Suspect]
     Indication: RHEUMATOID ARTHRITIS
     Dosage: FOR APPROX. 4.5 MONTHS,3-4 INFUSIONS,2 INJECTIONS,LAST INJECTION ON 15DEC2011
     Route: 058
     Dates: end: 20111215

REACTIONS (1)
  - Drug ineffective [Unknown]
